FAERS Safety Report 5126876-0 (Version None)
Quarter: 2006Q3

REPORT INFORMATION
  Report Type: 
  Country: None (occurrence: None)
  Receive Date: 20060825
  Receipt Date: 20060710
  Transmission Date: 20061208
  Serious: No
  Sender: FDA-Public Use
  Company Number: 2006US003191

PATIENT
  Age: 56 Year
  Sex: Female
  Weight: 72.1 kg

DRUGS (10)
  1. ALOXI [Suspect]
     Indication: PROPHYLAXIS OF NAUSEA AND VOMITING
     Dosage: SEE IMAGE
     Route: 042
     Dates: start: 20060626, end: 20060626
  2. ALOXI [Suspect]
     Indication: PROPHYLAXIS OF NAUSEA AND VOMITING
     Dosage: SEE IMAGE
     Route: 042
     Dates: start: 20060710, end: 20060710
  3. EFFEXOR XR [Concomitant]
  4. DEPAKOTE [Concomitant]
  5. TRILAFON /00023401/(PERPHENAZINE) [Concomitant]
  6. AMBIEN [Concomitant]
  7. CLONAZEPAM [Concomitant]
  8. LEVOXYL [Concomitant]
  9. MULTIVITAMIN /00831701/(VITAMINS NOS) [Concomitant]
  10. LACTASE (TILACTASE) [Concomitant]

REACTIONS (1)
  - INJECTION SITE IRRITATION [None]
